FAERS Safety Report 14601839 (Version 2)
Quarter: 2018Q1

REPORT INFORMATION
  Report Type: Spontaneous
  Country: JP (occurrence: JP)
  Receive Date: 20180306
  Receipt Date: 20180313
  Transmission Date: 20180509
  Serious: Yes (Other)
  Sender: FDA-Public Use
  Company Number: JP-ROCHE-2081274

PATIENT
  Age: 71 Year
  Sex: Female

DRUGS (5)
  1. PACLITAXEL. [Concomitant]
     Active Substance: PACLITAXEL
     Indication: MALIGNANT PERITONEAL NEOPLASM
     Dosage: DOSAGE IS UNCERTAIN. ?ADMINISTRATION PERIOD: FOUR COURSES
     Route: 041
  2. PACLITAXEL. [Concomitant]
     Active Substance: PACLITAXEL
     Dosage: DOSAGE IS UNCERTAIN. ?ADMINISTRATION PERIOD: TWO COURSES
     Route: 041
  3. CARBOPLATIN. [Concomitant]
     Active Substance: CARBOPLATIN
     Indication: MALIGNANT PERITONEAL NEOPLASM
     Dosage: DOSAGE IS UNCERTAIN. ?ADMINISTRATION PERIOD: FOUR COURSES
     Route: 041
  4. AVASTIN [Suspect]
     Active Substance: BEVACIZUMAB
     Indication: MALIGNANT PERITONEAL NEOPLASM
     Dosage: ADMINISTRATION PERIOD: FOUR COURSES
     Route: 041
  5. CARBOPLATIN. [Concomitant]
     Active Substance: CARBOPLATIN
     Dosage: DOSAGE IS UNCERTAIN. ?ADMINISTRATION PERIOD: TWO COURSES
     Route: 041

REACTIONS (2)
  - Pelvic neoplasm [Unknown]
  - Deep vein thrombosis [Unknown]
